FAERS Safety Report 17375034 (Version 2)
Quarter: 2020Q1

REPORT INFORMATION
  Report Type: Spontaneous
  Country: SE (occurrence: SE)
  Receive Date: 20200205
  Receipt Date: 20200211
  Transmission Date: 20200409
  Serious: Yes (Hospitalization)
  Sender: FDA-Public Use
  Company Number: NVSC2020SE023810

PATIENT
  Age: 13 Year
  Sex: Female

DRUGS (3)
  1. RITALIN [Suspect]
     Active Substance: METHYLPHENIDATE HYDROCHLORIDE
     Indication: PRODUCT USED FOR UNKNOWN INDICATION
     Dosage: UNK (21 TABLETTER 630 MG)
     Route: 065
     Dates: start: 20180825, end: 20180825
  2. ATARAX [Suspect]
     Active Substance: HYDROXYZINE HYDROCHLORIDE
     Indication: PRODUCT USED FOR UNKNOWN INDICATION
     Dosage: UNK (14 TABL 140 MG)
     Route: 065
     Dates: start: 20180825, end: 20180825
  3. LERGIGAN COMP. [Suspect]
     Active Substance: CAFFEINE\EPHEDRINE\PROMETHAZINE
     Indication: PRODUCT USED FOR UNKNOWN INDICATION
     Dosage: UNK (20 ST LERGIGAN, 10 MG COMP200 MG LERGIGAN1000 MG KOFFEIN200MG EFEDRIN)
     Route: 048
     Dates: start: 20180825, end: 20180825

REACTIONS (2)
  - Intentional self-injury [Unknown]
  - Intentional overdose [Unknown]

NARRATIVE: CASE EVENT DATE: 20180825
